FAERS Safety Report 7078334-4 (Version None)
Quarter: 2010Q4

REPORT INFORMATION
  Report Type: 
  Country: None (occurrence: None)
  Receive Date: 20101102
  Receipt Date: 20101015
  Transmission Date: 20110411
  Serious: Yes (Hospitalization, Other)
  Sender: FDA-Public Use
  Company Number: US-BAYER-200941598NA

PATIENT
  Age: 27 Year
  Sex: Female
  Weight: 118 kg

DRUGS (13)
  1. YAZ [Suspect]
     Indication: CONTRACEPTION
     Route: 048
     Dates: start: 20090601, end: 20100301
  2. YASMIN [Suspect]
     Indication: CONTRACEPTION
     Route: 048
     Dates: start: 20090601, end: 20100301
  3. OCELLA [Suspect]
     Indication: CONTRACEPTION
     Route: 048
     Dates: start: 20090601, end: 20100301
  4. ZOLOFT [Concomitant]
     Dosage: TOTAL DAILY DOSE: 50 MG
     Route: 048
  5. FLAGYL [Concomitant]
  6. PRILOSEC [Concomitant]
  7. CIPRO [Concomitant]
  8. VICODIN [Concomitant]
  9. ACETAMINOPHEN [Concomitant]
     Indication: HEADACHE
     Dates: start: 20090101
  10. PERCOCET [Concomitant]
     Indication: PAIN
     Dosage: 5/325 MG
     Dates: start: 20090801
  11. VISTARIL [Concomitant]
     Indication: NAUSEA
     Dates: start: 20090801
  12. PHENERGAN [Concomitant]
     Dates: start: 20090811
  13. VICODIN [Concomitant]
     Indication: PAIN
     Dosage: 5/500 MG
     Dates: start: 20090811

REACTIONS (8)
  - ABDOMINAL PAIN [None]
  - ABDOMINAL PAIN UPPER [None]
  - CHILLS [None]
  - CHOLELITHIASIS [None]
  - GALLBLADDER PAIN [None]
  - NAUSEA [None]
  - PYREXIA [None]
  - VOMITING [None]
